FAERS Safety Report 8905780 (Version 2)
Quarter: 2012Q4

REPORT INFORMATION
  Report Type: Report from Study
  Country: SE (occurrence: SE)
  Receive Date: 20121109
  Receipt Date: 20121207
  Transmission Date: 20130627
  Serious: Yes (Other)
  Sender: FDA-Public Use
  Company Number: SE-ROCHE-1153958

PATIENT
  Age: 55 Year
  Sex: Male
  Weight: 84 kg

DRUGS (3)
  1. RITUXIMAB [Suspect]
     Indication: B-CELL LYMPHOMA
     Dosage: Date of last dose prior to SAE: 05 Nov 2012
     Route: 042
     Dates: start: 20121008
  2. RITUXIMAB [Suspect]
     Dosage: Date of last dose prior to SAE:05/Nov/2012
     Route: 058
     Dates: start: 20121105
  3. RITUXIMAB [Suspect]
     Dosage: Date of last dose prior to SAE:05/Nov/2012
     Route: 058
     Dates: start: 20121203

REACTIONS (1)
  - Injection site reaction [Recovered/Resolved]
